FAERS Safety Report 12979108 (Version 1)
Quarter: 2016Q4

REPORT INFORMATION
  Report Type: Spontaneous
  Country: US (occurrence: US)
  Receive Date: 20161115
  Receipt Date: 20161115
  Transmission Date: 20170207
  Serious: No
  Sender: FDA-Public Use
  Company Number: None

PATIENT

DRUGS (1)
  1. XARELTO [Suspect]
     Active Substance: RIVAROXABAN
     Dosage: STARTER PACK
     Route: 048

REACTIONS (3)
  - Drug dispensing error [None]
  - Product name confusion [None]
  - Incorrect dose administered [None]
